FAERS Safety Report 10264223 (Version 1)
Quarter: 2014Q2

REPORT INFORMATION
  Report Type: Spontaneous
  Country: GB (occurrence: GB)
  Receive Date: 20140627
  Receipt Date: 20140627
  Transmission Date: 20141212
  Serious: Yes (Life-Threatening, Hospitalization)
  Sender: FDA-Public Use
  Company Number: GB-RANBAXY-2014RR-82875

PATIENT
  Age: 88 Year
  Sex: Female

DRUGS (6)
  1. AMOXICILLIN [Suspect]
     Indication: PNEUMONIA
     Dosage: 250 MG, UNK
     Route: 048
     Dates: start: 20140531, end: 20140531
  2. CLARITHROMYCIN [Suspect]
     Indication: PNEUMONIA
     Dosage: 500 MG, UNK
     Route: 048
     Dates: start: 20140531, end: 20140531
  3. AUGMENTIN [Suspect]
     Indication: PNEUMONIA
     Dosage: 1.2 G, UNK
     Route: 042
     Dates: start: 20140530, end: 20140530
  4. AUGMENTIN [Suspect]
     Indication: PNEUMONIA
     Dosage: 375 MG, UNK
     Route: 048
     Dates: start: 20140531, end: 20140531
  5. AMOXIL [Suspect]
     Indication: PRODUCT USED FOR UNKNOWN INDICATION
     Dosage: ONE WEEK COURSE BY DOCTOR PRIOR TO HOSPITAL ADMISSION
     Route: 065
  6. CLARITHROMYCIN [Suspect]
     Indication: PNEUMONIA
     Dosage: 500 MG, UNK
     Route: 042
     Dates: start: 20140530, end: 20140530

REACTIONS (4)
  - Pallor [Recovering/Resolving]
  - Rash [Recovering/Resolving]
  - Pain in extremity [Recovering/Resolving]
  - Malaise [Recovering/Resolving]
